FAERS Safety Report 4551380-8 (Version None)
Quarter: 2005Q1

REPORT INFORMATION
  Report Type: 
  Country: None (occurrence: None)
  Receive Date: 20050107
  Receipt Date: 20050103
  Transmission Date: 20050727
  Serious: Yes (Death)
  Sender: FDA-Public Use
  Company Number: 2005CG00031

PATIENT
  Age: 90 Year
  Sex: Female

DRUGS (13)
  1. OMEPRAZOLE [Suspect]
     Dosage: 20 MG DAILY PO
     Route: 048
     Dates: start: 20041031, end: 20041103
  2. OMEPRAZOLE [Suspect]
     Dates: start: 20041104
  3. PERFALGAN [Suspect]
     Dates: start: 20041031, end: 20041101
  4. PREVISCAN [Suspect]
     Dosage: 5 MG DAILY PO
     Route: 048
     Dates: start: 20041007, end: 20041102
  5. OFLOCET [Suspect]
     Dosage: 200 MG DAILY IV
     Route: 042
     Dates: start: 20041031, end: 20041110
  6. SOLU-MEDROL [Suspect]
     Dosage: 40 MG DAILY IV
     Route: 042
     Dates: start: 20041031, end: 20041031
  7. SOLU-MEDROL [Suspect]
     Dosage: 40 MG DAILY IV
     Route: 042
     Dates: start: 20041102, end: 20041103
  8. EFFEXOR [Suspect]
     Dosage: 37.5 MG DAILY PO
     Route: 048
     Dates: end: 20041031
  9. AUGMENTIN [Concomitant]
  10. LORAZEPAM [Concomitant]
  11. ASPEGIC 325 [Concomitant]
  12. TIAPRIDAL [Concomitant]
  13. NITRIDERM TTS [Concomitant]

REACTIONS (10)
  - BLOOD ALBUMIN DECREASED [None]
  - BRONCHIAL INFECTION [None]
  - DEHYDRATION [None]
  - DRUG INTERACTION [None]
  - GASTROINTESTINAL HAEMORRHAGE [None]
  - HAEMATEMESIS [None]
  - INTERNATIONAL NORMALISED RATIO INCREASED [None]
  - MALNUTRITION [None]
  - MELAENA [None]
  - SUPERINFECTION [None]
